FAERS Safety Report 8349381-7 (Version None)
Quarter: 2012Q2

REPORT INFORMATION
  Report Type: 
  Country: None (occurrence: None)
  Receive Date: 20120510
  Receipt Date: 20100730
  Transmission Date: 20120825
  Serious: No
  Sender: FDA-Public Use
  Company Number: US-TEVA-2010004022

PATIENT
  Sex: Female
  Weight: 79.45 kg

DRUGS (5)
  1. NUVIGIL [Suspect]
     Indication: FATIGUE
  2. LEXAPRO [Concomitant]
     Indication: DEPRESSION
     Dosage: 20 MILLIGRAM;
     Route: 048
     Dates: start: 20090101
  3. FLEXERIL [Concomitant]
     Dosage: 10 MILLIGRAM;
     Route: 048
     Dates: start: 20080101
  4. NUVIGIL [Suspect]
     Indication: MULTIPLE SCLEROSIS
     Dosage: 125 MILLIGRAM;
     Route: 048
     Dates: start: 20100501
  5. COPAXONE [Concomitant]
     Indication: MULTIPLE SCLEROSIS
     Route: 058
     Dates: start: 20100101

REACTIONS (1)
  - PAIN [None]
